FAERS Safety Report 8658999 (Version 3)
Quarter: 2012Q4

REPORT INFORMATION
  Report Type: Report from Study
  Country: JP (occurrence: JP)
  Receive Date: 20120710
  Receipt Date: 20120906
  Transmission Date: 20130627
  Serious: Yes (Other)
  Sender: FDA-Public Use
  Company Number: JP-JNJFOC-20120703705

PATIENT
  Age: 62 Year
  Sex: Female
  Weight: 82 kg

DRUGS (11)
  1. SIMPONI [Suspect]
     Indication: RHEUMATOID ARTHRITIS
     Route: 058
     Dates: start: 20111221
  2. SIMPONI [Suspect]
     Indication: RHEUMATOID ARTHRITIS
     Route: 058
     Dates: start: 20111124
  3. PITAVASTATIN CALCIUM [Concomitant]
     Indication: HYPERCHOLESTEROLAEMIA
     Route: 048
     Dates: start: 20111005, end: 20120125
  4. ADETPHOS [Concomitant]
     Indication: DIZZINESS
     Route: 048
     Dates: start: 20100521
  5. WARFARIN POTASSIUM [Concomitant]
     Indication: THROMBOPHLEBITIS
     Route: 048
     Dates: start: 20100421
  6. AMLODIN [Concomitant]
     Indication: HYPERTENSION
     Route: 048
     Dates: start: 20110901
  7. CONSTAN [Concomitant]
     Indication: INSOMNIA
     Route: 048
     Dates: start: 20110615
  8. SELBEX [Concomitant]
     Indication: GASTRITIS
     Route: 048
     Dates: start: 20100127
  9. MAGLAX [Concomitant]
     Indication: CONSTIPATION
     Route: 048
     Dates: start: 20110427
  10. LOXONIN [Concomitant]
     Indication: PAIN
     Route: 048
     Dates: start: 20100127
  11. MERISLON [Concomitant]
     Indication: DIZZINESS
     Route: 048
     Dates: start: 20110615

REACTIONS (5)
  - C-reactive protein increased [Recovered/Resolved]
  - Malaise [Recovered/Resolved]
  - Pain in extremity [Recovered/Resolved]
  - Paraesthesia [Recovered/Resolved]
  - Thrombophlebitis [Unknown]
